FAERS Safety Report 20796054 (Version 1)
Quarter: 2022Q2

REPORT INFORMATION
  Report Type: Spontaneous
  Country: FR (occurrence: FR)
  Receive Date: 20220506
  Receipt Date: 20220506
  Transmission Date: 20220721
  Serious: Yes (Death)
  Sender: FDA-Public Use
  Company Number: None

PATIENT
  Age: 53 Year
  Sex: Male
  Weight: 102 kg

DRUGS (1)
  1. VANCOMYCIN [Suspect]
     Active Substance: VANCOMYCIN
     Indication: Intervertebral discitis
     Dosage: 4G/J
     Dates: start: 20211201, end: 20211217

REACTIONS (1)
  - Linear IgA disease [Fatal]

NARRATIVE: CASE EVENT DATE: 20211206
